FAERS Safety Report 17983436 (Version 2)
Quarter: 2022Q4

REPORT INFORMATION
  Report Type: Report from Study
  Country: TH (occurrence: TH)
  Receive Date: 20200706
  Receipt Date: 20221006
  Transmission Date: 20230112
  Serious: Yes (Death, Other)
  Sender: FDA-Public Use
  Company Number: TH-NOVARTISPH-NVSC2020TH005778

PATIENT
  Sex: Male

DRUGS (1)
  1. ENTRESTO [Suspect]
     Active Substance: SACUBITRIL\VALSARTAN
     Indication: Cardiac failure
     Dosage: 0.5 DF, BID(AFTER MEAL IN THE MORNING AND EVENING)
     Route: 048

REACTIONS (2)
  - Death [Fatal]
  - Wrong technique in product usage process [Unknown]
